FAERS Safety Report 16534212 (Version 1)
Quarter: 2019Q3

REPORT INFORMATION
  Report Type: Report from Study
  Country: US (occurrence: US)
  Receive Date: 20190705
  Receipt Date: 20190705
  Transmission Date: 20191004
  Serious: Yes (Hospitalization)
  Sender: FDA-Public Use
  Company Number: US-ASTRAZENECA-2019SE58686

PATIENT
  Age: 56 Year
  Sex: Male
  Weight: 96.2 kg

DRUGS (3)
  1. MEDI4736 [Suspect]
     Active Substance: DURVALUMAB
     Indication: SQUAMOUS CELL CARCINOMA OF HEAD AND NECK
     Route: 042
     Dates: start: 20190328, end: 20190523
  2. AZD9150 [Suspect]
     Active Substance: DANVATIRSEN
     Indication: SQUAMOUS CELL CARCINOMA OF HEAD AND NECK
     Dosage: 200 MG/400 MG, LEAD-IN/Q2W
     Route: 042
     Dates: start: 20190320, end: 20190523
  3. IBUPROFEN. [Concomitant]
     Active Substance: IBUPROFEN
     Indication: MYALGIA
     Route: 048

REACTIONS (3)
  - Hyponatraemia [Recovered/Resolved]
  - Facial nerve disorder [Recovered/Resolved with Sequelae]
  - Hepatitis [Recovered/Resolved]

NARRATIVE: CASE EVENT DATE: 20190411
